FAERS Safety Report 5393340-3 (Version None)
Quarter: 2007Q3

REPORT INFORMATION
  Report Type: 
  Country: None (occurrence: None)
  Receive Date: 20070723
  Receipt Date: 20070713
  Transmission Date: 20080115
  Serious: Yes (Other)
  Sender: FDA-Public Use
  Company Number: PHBS2007JP12058

PATIENT
  Age: 69 Year
  Sex: Female

DRUGS (2)
  1. NORVASC [Concomitant]
     Indication: HYPERTENSION
     Route: 048
  2. DIOVAN [Suspect]
     Indication: HYPERTENSION
     Dosage: 80 MG, QD
     Route: 048
     Dates: start: 20010101

REACTIONS (2)
  - HYPERSENSITIVITY [None]
  - INTERSTITIAL LUNG DISEASE [None]
